FAERS Safety Report 6516085-2 (Version None)
Quarter: 2009Q4

REPORT INFORMATION
  Report Type: 
  Country: None (occurrence: None)
  Receive Date: 20091223
  Receipt Date: 20091111
  Transmission Date: 20100525
  Serious: No
  Sender: FDA-Public Use
  Company Number: US-ABBOTT-09P-163-0608984-00

PATIENT
  Sex: Male

DRUGS (2)
  1. LUPRON DEPOT [Suspect]
     Indication: PROSTATE CANCER RECURRENT
     Route: 030
     Dates: start: 20090922, end: 20090922
  2. LUPRON DEPOT [Suspect]
     Route: 030
     Dates: start: 20091028, end: 20091028

REACTIONS (1)
  - INAPPROPRIATE SCHEDULE OF DRUG ADMINISTRATION [None]
